FAERS Safety Report 6018605-3 (Version None)
Quarter: 2008Q4

REPORT INFORMATION
  Report Type: 
  Country: None (occurrence: None)
  Receive Date: 20081223
  Receipt Date: 20081216
  Transmission Date: 20090506
  Serious: Yes (Life-Threatening, Hospitalization)
  Sender: FDA-Public Use
  Company Number: AU-JNJCH-2008057607

PATIENT
  Age: 2 Year
  Sex: Female

DRUGS (1)
  1. VISINE EYE DROPS [Suspect]
     Indication: DRUG USE FOR UNKNOWN INDICATION
     Dosage: TEXT:UNSPECIFIED
     Route: 065
     Dates: start: 20080908, end: 20080908

REACTIONS (5)
  - ACCIDENTAL EXPOSURE [None]
  - DYSPNOEA [None]
  - HEART RATE DECREASED [None]
  - OXYGEN SATURATION DECREASED [None]
  - SEDATION [None]
